FAERS Safety Report 7940859-4 (Version None)
Quarter: 2011Q4

REPORT INFORMATION
  Report Type: 
  Country: None (occurrence: None)
  Receive Date: 20111114
  Receipt Date: 20110725
  Transmission Date: 20120403
  Serious: Yes (Other)
  Sender: FDA-Public Use
  Company Number: 1000019555

PATIENT
  Age: 49 Year
  Sex: Female

DRUGS (12)
  1. LORATADINE (LORATADINE) (LORATADINE) [Concomitant]
  2. NEXIUM [Concomitant]
  3. KCL (POTASSIUM CHLORIDE) (POTASSIUM CHLORIDE) [Concomitant]
  4. MVI (MVI) (MVI) [Concomitant]
  5. ATENOLOL [Concomitant]
  6. SAVELLA [Suspect]
     Indication: FIBROMYALGIA
     Dosage: ORAL
     Route: 048
     Dates: start: 20100805
  7. PROZAC (FLUOXETINE) (FLUOXETINE) [Concomitant]
  8. SAVELLA [Suspect]
     Indication: FIBROMYALGIA
     Dosage: 200 MG (100 MG,2 IN 1 D),ORAL
     Route: 048
     Dates: end: 20110105
  9. LYRICA [Concomitant]
  10. XANAX XR (ALPRAZOLAM) (ALPRAZOLAM) [Concomitant]
  11. OXYCONTIN (OXYCODONE HYDROCHLORIDE) (OXYCODONE HYDROCHLORIDE) [Concomitant]
  12. TRILEPTAL (OXCARBAZEPINE) (OXCARBAZEPINE) [Concomitant]

REACTIONS (5)
  - BLOOD ALKALINE PHOSPHATASE INCREASED [None]
  - ASPARTATE AMINOTRANSFERASE INCREASED [None]
  - VOMITING [None]
  - NAUSEA [None]
  - ALANINE AMINOTRANSFERASE INCREASED [None]
